FAERS Safety Report 9830940 (Version 2)
Quarter: 2014Q1

REPORT INFORMATION
  Report Type: Spontaneous
  Country: US (occurrence: US)
  Receive Date: 20140120
  Receipt Date: 20140120
  Transmission Date: 20141002
  Serious: No
  Sender: FDA-Public Use
  Company Number: US-MYLANLABS-2013S1015192

PATIENT
  Age: 24 Year
  Sex: Female

DRUGS (6)
  1. COSYNTROPIN FOR INJECTION [Suspect]
     Indication: ADRENAL INSUFFICIENCY
     Route: 042
     Dates: start: 20130619, end: 20130619
  2. INSULIN [Concomitant]
     Dosage: INSULIN PUMP
  3. SYNTHROID [Concomitant]
     Route: 048
  4. MULTIVITAMINS [Concomitant]
     Route: 048
  5. VITAMIN D [Concomitant]
  6. ZOCOR [Concomitant]
     Route: 048

REACTIONS (2)
  - Rash [Not Recovered/Not Resolved]
  - Nausea [Not Recovered/Not Resolved]
